FAERS Safety Report 8388814-7 (Version None)
Quarter: 2012Q2

REPORT INFORMATION
  Report Type: 
  Country: None (occurrence: None)
  Receive Date: 20120528
  Receipt Date: 20120516
  Transmission Date: 20120825
  Serious: Yes (Hospitalization)
  Sender: FDA-Public Use
  Company Number: US-BIOGENIDEC-2011BI043384

PATIENT
  Age: 56 Year
  Sex: Female

DRUGS (3)
  1. TOPROL-XL [Concomitant]
  2. TOPROL-XL [Concomitant]
     Indication: HYPERTENSION
  3. TYSABRI [Suspect]
     Indication: MULTIPLE SCLEROSIS
     Route: 042
     Dates: start: 20080508

REACTIONS (5)
  - COLON GANGRENE [None]
  - NEPHROLITHIASIS [None]
  - URINARY TRACT INFECTION [None]
  - CHOLELITHIASIS [None]
  - GALLBLADDER FISTULA [None]
